FAERS Safety Report 5226444-6 (Version None)
Quarter: 2007Q1

REPORT INFORMATION
  Report Type: 
  Country: None (occurrence: None)
  Receive Date: 20070201
  Receipt Date: 20070125
  Transmission Date: 20070707
  Serious: Yes (Hospitalization)
  Sender: FDA-Public Use
  Company Number: 2007SE00578

PATIENT
  Sex: Female

DRUGS (2)
  1. ATACAND [Suspect]
     Dates: start: 20010101
  2. PLENDIL [Suspect]

REACTIONS (1)
  - POLYCYSTIC LIVER DISEASE [None]
